FAERS Safety Report 21524235 (Version 1)
Quarter: 2022Q4

REPORT INFORMATION
  Report Type: Report from Study
  Country: IL (occurrence: IL)
  Receive Date: 20221029
  Receipt Date: 20221029
  Transmission Date: 20230112
  Serious: Yes (Other)
  Sender: FDA-Public Use
  Company Number: IL-NOVARTISPH-NVSC2022IL242686

PATIENT
  Age: 33 Year
  Sex: Female

DRUGS (1)
  1. MAYZENT [Suspect]
     Active Substance: SIPONIMOD
     Indication: Relapsing-remitting multiple sclerosis
     Dosage: 4 DOSAGE FORM (0.25MG), QD
     Route: 048
     Dates: start: 20210504, end: 20221012

REACTIONS (1)
  - Condition aggravated [Unknown]
